FAERS Safety Report 20089912 (Version 1)
Quarter: 2021Q4

REPORT INFORMATION
  Report Type: Spontaneous
  Country: US (occurrence: None)
  Receive Date: 20211118
  Receipt Date: 20211118
  Transmission Date: 20220304
  Serious: Yes (Hospitalization)
  Sender: FDA-Public Use
  Company Number: None

PATIENT
  Sex: Female

DRUGS (25)
  1. XELJANZ [Suspect]
     Active Substance: TOFACITINIB CITRATE
     Indication: Rheumatoid arthritis
     Dosage: FREQUENCY : TWICE A DAY;?
     Route: 048
     Dates: start: 20200905
  2. AMOX/K [Concomitant]
  3. AMOXICILLIN [Concomitant]
     Active Substance: AMOXICILLIN
  4. ASPIRIN [Concomitant]
     Active Substance: ASPIRIN
  5. ASPIRIN LOW [Concomitant]
  6. ATORVASTATIN [Concomitant]
  7. CHLORHEX GLU [Concomitant]
  8. CLOPIDOGREL [Concomitant]
  9. DOXYCYCL HYC [Concomitant]
  10. FLUCONAZOLE [Concomitant]
  11. FLUTICASONE SPR [Concomitant]
  12. FOLIC ACID [Concomitant]
  13. HYDROCO/APAP [Concomitant]
  14. IBUPROFEN [Concomitant]
  15. KETOCONAZOLE CRE [Concomitant]
  16. KETOCONAZOLE SHA [Concomitant]
  17. LORATADINE [Concomitant]
  18. METHYLPRED [Concomitant]
  19. METRONIDAZOL CRE [Concomitant]
  20. MINOCYCLINE [Concomitant]
  21. NITROFURANTIN [Concomitant]
  22. PREDNISONE [Concomitant]
  23. HYDROCHLOROTHIAZIDE\TRIAMTERENE [Concomitant]
     Active Substance: HYDROCHLOROTHIAZIDE\TRIAMTERENE
  24. VERAPAMIL [Concomitant]
     Active Substance: VERAPAMIL HYDROCHLORIDE
  25. VITAMIN D [Concomitant]

REACTIONS (3)
  - Respiratory disorder [None]
  - Essential hypertension [None]
  - Gout [None]
